FAERS Safety Report 13010127 (Version 2)
Quarter: 2018Q1

REPORT INFORMATION
  Report Type: Report from Study
  Country: US (occurrence: US)
  Receive Date: 20161208
  Receipt Date: 20180319
  Transmission Date: 20180508
  Serious: Yes (Hospitalization)
  Sender: FDA-Public Use
  Company Number: US-JNJFOC-20161111769

PATIENT
  Age: 57 Year
  Sex: Male

DRUGS (17)
  1. SYMBICORT [Concomitant]
     Active Substance: BUDESONIDE\FORMOTEROL FUMARATE DIHYDRATE
  2. SINGULAIR [Concomitant]
     Active Substance: MONTELUKAST SODIUM
  3. ABILIFY [Concomitant]
     Active Substance: ARIPIPRAZOLE
  4. TIZANIDINE. [Concomitant]
     Active Substance: TIZANIDINE
  5. NAPROXEN. [Concomitant]
     Active Substance: NAPROXEN
  6. AMITRIPTYLINE HCL [Concomitant]
     Active Substance: AMITRIPTYLINE
  7. IMBRUVICA [Suspect]
     Active Substance: IBRUTINIB
     Indication: MANTLE CELL LYMPHOMA
     Route: 048
     Dates: start: 20160126
  8. THEOPHYLLINE [Concomitant]
     Active Substance: THEOPHYLLINE ANHYDROUS
  9. FENOFIBRATE. [Concomitant]
     Active Substance: FENOFIBRATE
  10. ALBUTEROL. [Concomitant]
     Active Substance: ALBUTEROL
  11. XANAX [Concomitant]
     Active Substance: ALPRAZOLAM
  12. LORATADINE. [Concomitant]
     Active Substance: LORATADINE
  13. IMBRUVICA [Suspect]
     Active Substance: IBRUTINIB
     Indication: MANTLE CELL LYMPHOMA
     Route: 048
     Dates: start: 20151215, end: 20161201
  14. PROMETHAZINE [Concomitant]
     Active Substance: PROMETHAZINE\PROMETHAZINE HYDROCHLORIDE
  15. VENLAFAXINE [Concomitant]
     Active Substance: VENLAFAXINE HYDROCHLORIDE
  16. OMEPRAZOLE. [Concomitant]
     Active Substance: OMEPRAZOLE
  17. LISINOPRIL. [Concomitant]
     Active Substance: LISINOPRIL

REACTIONS (5)
  - Lung disorder [Not Recovered/Not Resolved]
  - Chronic obstructive pulmonary disease [Unknown]
  - Pneumonia [Not Recovered/Not Resolved]
  - Dysphonia [Unknown]
  - Cough [Unknown]

NARRATIVE: CASE EVENT DATE: 20161101
